FAERS Safety Report 23140338 (Version 1)
Quarter: 2023Q4

REPORT INFORMATION
  Report Type: Spontaneous
  Country: IT (occurrence: IT)
  Receive Date: 20231102
  Receipt Date: 20231102
  Transmission Date: 20240109
  Serious: Yes (Other)
  Sender: FDA-Public Use
  Company Number: IT-002147023-NVSC2021IT284385

PATIENT
  Age: 37 Year
  Sex: Female

DRUGS (6)
  1. PRIVIGEN [Interacting]
     Active Substance: HUMAN IMMUNOGLOBULIN G
     Indication: Product used for unknown indication
     Dosage: 60 G, MONTHLY
     Route: 042
  2. MYCOPHENOLATE MOFETIL [Interacting]
     Active Substance: MYCOPHENOLATE MOFETIL
     Indication: Myasthenia gravis
     Dosage: 1500 MG, QD
     Route: 065
  3. MYCOPHENOLATE MOFETIL [Interacting]
     Active Substance: MYCOPHENOLATE MOFETIL
     Indication: Immunosuppressant drug therapy
  4. PREDNISONE [Interacting]
     Active Substance: PREDNISONE
     Indication: Myasthenia gravis
     Dosage: 20 MG, QD
     Route: 065
  5. PREDNISONE [Interacting]
     Active Substance: PREDNISONE
     Indication: Immunosuppressant drug therapy
  6. TOZINAMERAN [Interacting]
     Active Substance: TOZINAMERAN
     Indication: COVID-19 immunisation
     Dosage: DOSE 2, 30 UG SINGLE
     Route: 065

REACTIONS (3)
  - Vaccination failure [Unknown]
  - Drug interaction [Unknown]
  - Antibody test negative [Unknown]
